FAERS Safety Report 9914572 (Version 9)
Quarter: 2021Q4

REPORT INFORMATION
  Report Type: Spontaneous
  Country: US (occurrence: US)
  Receive Date: 20140220
  Receipt Date: 20211209
  Transmission Date: 20220304
  Serious: Yes (Other)
  Sender: FDA-Public Use
  Company Number: US-PFIZER INC-2014049307

PATIENT
  Age: 69 Year
  Sex: Female
  Weight: 108.86 kg

DRUGS (12)
  1. LYRICA [Suspect]
     Active Substance: PREGABALIN
     Indication: Neuropathy peripheral
     Dosage: 75 MG, THREE TIMES A DAY
  2. LYRICA [Suspect]
     Active Substance: PREGABALIN
     Indication: Neuropathy peripheral
     Dosage: 75 MG, TWICE A DAY (1 CAPSULE BY MOUTH 2 (TWO) TIMES DAILY FOR 90 DAY)
     Route: 048
     Dates: start: 20181101
  3. LYRICA [Suspect]
     Active Substance: PREGABALIN
     Indication: Mononeuritis
     Dosage: 75 MG, 2X/DAY
     Route: 048
  4. LYRICA [Suspect]
     Active Substance: PREGABALIN
     Indication: Rheumatoid arthritis
  5. LYRICA [Suspect]
     Active Substance: PREGABALIN
     Indication: Type V hyperlipidaemia
  6. LYRICA [Suspect]
     Active Substance: PREGABALIN
     Indication: Gastrooesophageal reflux disease
  7. LYRICA [Suspect]
     Active Substance: PREGABALIN
     Indication: Vitamin D deficiency
  8. LYRICA [Suspect]
     Active Substance: PREGABALIN
     Indication: Iron deficiency anaemia
  9. LYRICA [Suspect]
     Active Substance: PREGABALIN
     Indication: Obesity
  10. LYRICA [Suspect]
     Active Substance: PREGABALIN
     Indication: Hypothyroidism
  11. LYRICA [Suspect]
     Active Substance: PREGABALIN
     Indication: Crohn^s disease
  12. CARVEDILOL [Concomitant]
     Active Substance: CARVEDILOL
     Indication: Blood pressure abnormal
     Dosage: 25 MG, TWO TIMES A DAY

REACTIONS (2)
  - Arthropathy [Unknown]
  - Product dose omission issue [Unknown]

NARRATIVE: CASE EVENT DATE: 20131001
